FAERS Safety Report 5889747-8 (Version None)
Quarter: 2008Q3

REPORT INFORMATION
  Report Type: 
  Country: None (occurrence: None)
  Receive Date: 20080919
  Receipt Date: 20080916
  Transmission Date: 20090109
  Serious: Yes (Life-Threatening, Hospitalization, Disabling)
  Sender: FDA-Public Use
  Company Number: US-MERCK-0809USA02401

PATIENT
  Age: 49 Year
  Sex: Male

DRUGS (4)
  1. VYTORIN [Suspect]
     Indication: HYPERLIPIDAEMIA
     Route: 048
  2. WELCHOL [Concomitant]
     Route: 065
  3. METFORMIN [Concomitant]
     Route: 065
  4. ALTACE [Concomitant]
     Route: 065

REACTIONS (3)
  - LETHARGY [None]
  - MOVEMENT DISORDER [None]
  - RHABDOMYOLYSIS [None]
